FAERS Safety Report 24831933 (Version 1)
Quarter: 2025Q1

REPORT INFORMATION
  Report Type: Spontaneous
  Country: CN (occurrence: CN)
  Receive Date: 20250110
  Receipt Date: 20250110
  Transmission Date: 20250408
  Serious: Yes (Other)
  Sender: PFIZER
  Company Number: CN-PFIZER INC-PV202500001051

PATIENT
  Age: 82 Year
  Sex: Male
  Weight: 58 kg

DRUGS (5)
  1. VORICONAZOLE [Suspect]
     Active Substance: VORICONAZOLE
     Indication: Anti-infective therapy
     Dosage: 0.3 G, 2X/DAY
     Route: 041
     Dates: start: 20220411, end: 20220411
  2. VORICONAZOLE [Suspect]
     Active Substance: VORICONAZOLE
     Indication: Pneumonia cryptococcal
     Dosage: 0.2 G, 2X/DAY
     Route: 041
     Dates: start: 20220412, end: 20220413
  3. MEROPENEM [Concomitant]
     Active Substance: MEROPENEM
     Indication: Evidence based treatment
     Dosage: 1 G, 3X/DAY
     Dates: start: 202204, end: 202204
  4. LEVOFLOXACIN [Concomitant]
     Active Substance: LEVOFLOXACIN
     Indication: Evidence based treatment
     Dosage: 0.5 G, 1X/DAY
     Dates: start: 20220407, end: 20240412
  5. CEFOPERAZONE SODIUM\SULBACTAM SODIUM [Concomitant]
     Active Substance: CEFOPERAZONE SODIUM\SULBACTAM SODIUM
     Indication: Evidence based treatment
     Dosage: 3 G, 3X/DAY
     Dates: start: 20220407, end: 202204

REACTIONS (5)
  - Delirium [Recovered/Resolved]
  - Mental disorder [Recovered/Resolved]
  - Phobia [Recovered/Resolved]
  - Drug ineffective [Recovered/Resolved]
  - Respiratory failure [Recovered/Resolved]

NARRATIVE: CASE EVENT DATE: 20220401
